FAERS Safety Report 24527673 (Version 1)
Quarter: 2024Q4

REPORT INFORMATION
  Report Type: Spontaneous
  Country: SE (occurrence: SE)
  Receive Date: 20241021
  Receipt Date: 20241021
  Transmission Date: 20250115
  Serious: Yes (Other)
  Sender: BOEHRINGER INGELHEIM
  Company Number: None

PATIENT
  Age: 66 Year
  Sex: Female

DRUGS (2)
  1. JARDIANCE [Suspect]
     Active Substance: EMPAGLIFLOZIN
     Indication: Diabetes mellitus
  2. VAGIFEM [Concomitant]
     Active Substance: ESTRADIOL
     Indication: Product used for unknown indication
     Dates: start: 202409

REACTIONS (3)
  - Vulvitis [Unknown]
  - Genital pain [Unknown]
  - Vulval ulceration [Unknown]

NARRATIVE: CASE EVENT DATE: 20240101
